FAERS Safety Report 5444383-2 (Version None)
Quarter: 2007Q3

REPORT INFORMATION
  Report Type: 
  Country: None (occurrence: None)
  Receive Date: 20070831
  Receipt Date: 20061002
  Transmission Date: 20080115
  Serious: Yes (Hospitalization)
  Sender: FDA-Public Use
  Company Number: 8019431

PATIENT
  Age: 76 Year
  Sex: Female
  Weight: 40 kg

DRUGS (11)
  1. SALBUTAMOL [Suspect]
     Dosage: INH
     Route: 055
  2. THEOPHYLLINE [Suspect]
     Dosage: 200 MG 1/D PO
     Route: 048
  3. BUDESONIDE [Concomitant]
  4. CARBOCYSTEINE [Concomitant]
  5. CO-CODAMOL [Concomitant]
  6. FLUOXETINE [Concomitant]
  7. IPRATROPIUM BROMIDE [Concomitant]
  8. LACTULOSE [Concomitant]
  9. LEVOTHYROXINE SODIUM [Concomitant]
  10. NITRAZEPAM [Concomitant]
  11. PERINDOPRIL ERBUMINE [Concomitant]

REACTIONS (4)
  - ATRIAL FIBRILLATION [None]
  - ELECTROCARDIOGRAM QRS COMPLEX SHORTENED [None]
  - NO THERAPEUTIC RESPONSE [None]
  - TACHYCARDIA [None]
